FAERS Safety Report 4300543-5 (Version None)
Quarter: 2004Q1

REPORT INFORMATION
  Report Type: 
  Country: None (occurrence: None)
  Receive Date: 20040220
  Receipt Date: 19930921
  Transmission Date: 20041129
  Serious: Yes (Hospitalization)
  Sender: FDA-Public Use
  Company Number: S9394641

PATIENT
  Age: 65 Year
  Sex: Female
  Weight: 46 kg

DRUGS (9)
  1. CORTANCYL [Suspect]
  2. CYTOTEC [Suspect]
     Route: 048
  3. SOLU-MEDROL [Suspect]
     Dosage: 500 MG PER DAY
     Dates: start: 19920109, end: 19920110
  4. SULFASALAZINE [Suspect]
     Indication: ARTHRITIS REACTIVE
  5. NEBCIN [Concomitant]
     Route: 065
  6. DAFALGAN [Concomitant]
     Route: 048
  7. AUGMENTIN [Concomitant]
     Route: 048
  8. AREDIA [Suspect]
     Indication: OSTEITIS DEFORMANS
     Dosage: 60 MG DAILY
     Route: 042
     Dates: start: 19920114, end: 19920114
  9. VOLTAREN [Concomitant]
     Route: 048

REACTIONS (4)
  - BONE DISORDER [None]
  - BONE PAIN [None]
  - OSTEOMALACIA [None]
  - PATHOLOGICAL FRACTURE [None]
